FAERS Safety Report 6622674-7 (Version None)
Quarter: 2010Q1

REPORT INFORMATION
  Report Type: 
  Country: None (occurrence: None)
  Receive Date: 20100310
  Receipt Date: 20100120
  Transmission Date: 20100710
  Serious: No
  Sender: FDA-Public Use
  Company Number: US-BIOGENIDEC-2010BI002045

PATIENT
  Age: 56 Year
  Sex: Female

DRUGS (1)
  1. AVONEX [Suspect]
     Indication: MULTIPLE SCLEROSIS
     Route: 030
     Dates: start: 20091104

REACTIONS (5)
  - ABDOMINAL DISCOMFORT [None]
  - ASTHENIA [None]
  - GAIT DISTURBANCE [None]
  - INJECTION SITE PAIN [None]
  - PAIN IN EXTREMITY [None]
